FAERS Safety Report 8100898-X (Version None)
Quarter: 2012Q1

REPORT INFORMATION
  Report Type: 
  Country: None (occurrence: None)
  Receive Date: 20120129
  Receipt Date: 20111024
  Transmission Date: 20120608
  Serious: Yes (Other)
  Sender: FDA-Public Use
  Company Number: US-ABBOTT-11P-163-0853117-00

PATIENT
  Sex: Female
  Weight: 65.376 kg

DRUGS (2)
  1. CYCLOSPORINE [Suspect]
     Indication: PRODUCT USED FOR UNKNOWN INDICATION
     Route: 048
  2. HUMIRA [Suspect]
     Indication: PSORIATIC ARTHROPATHY
     Route: 058
     Dates: start: 20090101, end: 20110601

REACTIONS (2)
  - IMMUNE SYSTEM DISORDER [None]
  - SQUAMOUS CELL CARCINOMA [None]
